FAERS Safety Report 9539636 (Version 3)
Quarter: 2013Q4

REPORT INFORMATION
  Report Type: Spontaneous
  Country: JP (occurrence: JP)
  Receive Date: 20130920
  Receipt Date: 20131024
  Transmission Date: 20140711
  Serious: Yes (Hospitalization)
  Sender: FDA-Public Use
  Company Number: JP-OTSUKA-JP-2013-13068

PATIENT
  Age: 56 Year
  Sex: Male
  Weight: 58 kg

DRUGS (27)
  1. WARFARIN K [Concomitant]
     Dosage: 2.5 MG MILLIGRAM(S), DAILY DOSE
     Route: 048
     Dates: start: 20130530
  2. ALLOPURINOL [Concomitant]
     Indication: HYPERURICAEMIA
     Dosage: 200 MG MILLIGRAM(S), QD
     Route: 048
     Dates: end: 20130525
  3. ALDACTONE A [Concomitant]
     Indication: CARDIAC FAILURE CHRONIC
     Dosage: 25 MG MILLIGRAM(S), QD
     Route: 048
     Dates: end: 20130525
  4. GLACTIV [Concomitant]
     Indication: DIABETES MELLITUS
     Dosage: 50 MG MILLIGRAM(S), QD
     Route: 048
     Dates: end: 20130525
  5. LIPITOR [Concomitant]
     Indication: DYSLIPIDAEMIA
     Dosage: 5 MG MILLIGRAM(S), QD
     Route: 048
     Dates: end: 20130524
  6. LIPITOR [Concomitant]
     Dosage: 10 MG MILLIGRAM(S), DAILY DOSE
     Route: 048
     Dates: start: 20130525
  7. BLOPRESS [Concomitant]
     Indication: CARDIAC FAILURE CHRONIC
     Dosage: 4 MG MILLIGRAM(S), QD
     Route: 048
  8. ARTIST [Concomitant]
     Indication: CARDIAC FAILURE CHRONIC
     Dosage: 10 MG MILLIGRAM(S), QD
     Route: 048
  9. DIART [Concomitant]
     Indication: CARDIAC FAILURE CHRONIC
     Dosage: 120 MG MILLIGRAM(S), QD
     Route: 048
  10. PARIET [Concomitant]
     Indication: GASTROOESOPHAGEAL REFLUX DISEASE
     Dosage: 20 MG MILLIGRAM(S), QD
     Route: 048
  11. MUCOSTA [Concomitant]
     Indication: GASTRITIS
     Dosage: 100 MG MILLIGRAM(S), TID
     Route: 048
  12. LASIX [Concomitant]
     Indication: CARDIAC FAILURE CHRONIC
     Dosage: 40 MG MILLIGRAM(S), QD
     Route: 048
  13. LASIX [Concomitant]
     Dosage: 20 MG MILLIGRAM(S), QD
     Route: 048
  14. SAMSCA [Suspect]
     Indication: CARDIAC FAILURE CHRONIC
     Dosage: 15 MG MILLIGRAM(S), QD
     Route: 048
     Dates: start: 20130410, end: 20130528
  15. SERENACE [Concomitant]
     Indication: DELIRIUM
     Dosage: 10 MG MILLIGRAM(S), DAILY DOSE
     Route: 041
     Dates: start: 20130524, end: 20130524
  16. ANEXATE [Concomitant]
     Indication: REVERSAL OF SEDATION
     Dosage: 0.5 MG MILLIGRAM(S), DAILY DOSE
     Route: 042
     Dates: start: 20130524, end: 20130524
  17. DORMICUM [Concomitant]
     Indication: ANAESTHETIC PREMEDICATION
     Dosage: 10 MG MILLIGRAM(S), DAILY DOSE
     Route: 041
     Dates: start: 20130524, end: 20130524
  18. VITAMEDIN [Concomitant]
     Indication: HYPOVITAMINOSIS
     Dosage: 100 MG MILLIGRAM(S), DAILY DOSE
     Route: 041
     Dates: start: 20130524, end: 20130527
  19. VITAMIN C [Concomitant]
     Indication: HYPOVITAMINOSIS
     Dosage: 500 MG MILLIGRAM(S), DAILY DOSE
     Route: 041
     Dates: start: 20130524, end: 20130527
  20. SOLITA [Concomitant]
     Indication: DEHYDRATION
     Dosage: 1000 MG MILLIGRAM(S), DAILY DOSE
     Route: 041
     Dates: start: 20130524, end: 20130527
  21. HEPARIN [Concomitant]
     Indication: ATRIAL FLUTTER
     Dosage: 10 KIU IU(1000S), DAILY DOSE
     Route: 041
     Dates: start: 20130524, end: 20130531
  22. TRAZENTA [Concomitant]
     Indication: DIABETES MELLITUS
     Dosage: 5 MG MILLIGRAM(S), QD
     Route: 048
     Dates: start: 20130525, end: 20130606
  23. FEBURIC [Concomitant]
     Indication: HYPERURICAEMIA
     Dosage: 10 MG MILLIGRAM(S), QD
     Route: 048
     Dates: start: 20130525, end: 20130626
  24. FEBURIC [Concomitant]
     Dosage: 20 MG MILLIGRAM(S), DAILY DOSE
     Route: 048
     Dates: start: 20130627
  25. ANCARON [Concomitant]
     Indication: VENTRICULAR TACHYCARDIA
     Dosage: 100 MG MILLIGRAM(S), BID
     Route: 048
     Dates: start: 20130525, end: 20130529
  26. ANCARON [Concomitant]
     Dosage: 50 MG MILLIGRAM(S), BID
     Route: 048
     Dates: start: 20130530
  27. WARFARIN K [Concomitant]
     Indication: ATRIAL FLUTTER
     Dosage: 3 MG MILLIGRAM(S), QD
     Route: 048
     Dates: start: 20130525, end: 20130529

REACTIONS (3)
  - Hepatic function abnormal [Recovered/Resolved]
  - Thirst [Unknown]
  - Atrial fibrillation [Recovering/Resolving]
